FAERS Safety Report 20720581 (Version 1)
Quarter: 2022Q2

REPORT INFORMATION
  Report Type: Spontaneous
  Country: HR (occurrence: HR)
  Receive Date: 20220418
  Receipt Date: 20220418
  Transmission Date: 20220721
  Serious: Yes (Other)
  Sender: FDA-Public Use
  Company Number: None

PATIENT
  Age: 42 Year
  Sex: Female

DRUGS (1)
  1. IBUPROFEN [Suspect]
     Active Substance: IBUPROFEN
     Indication: Arthralgia
     Dosage: 6 GRAM, QD
     Route: 048
     Dates: start: 20211018, end: 20211018

REACTIONS (2)
  - Hepatic enzyme increased [Unknown]
  - Drug abuse [Unknown]

NARRATIVE: CASE EVENT DATE: 20211018
